FAERS Safety Report 8304618 (Version 7)
Quarter: 2012Q4

REPORT INFORMATION
  Report Type: 
  Country: JP (occurrence: JP)
  Receive Date: 20111221
  Receipt Date: 20121113
  Transmission Date: 20130627
  Serious: Yes (Other)
  Sender: FDA-Public Use
  Company Number: JP-PFIZER INC-2011307236

PATIENT
  Age: 57 Year
  Sex: Female

DRUGS (9)
  1. LYRICA [Suspect]
     Indication: PAIN
     Dosage: 25 mg, 2x/day
     Route: 048
     Dates: start: 201007
  2. LYRICA [Suspect]
     Dosage: 25 mg, 1x/day
     Route: 048
     Dates: start: 2010
  3. LYRICA [Suspect]
     Dosage: 25 mg, 2x/day
     Route: 048
  4. LYRICA [Suspect]
     Dosage: 25 mg, 1x/day
     Dates: start: 2011
  5. LYRICA [Suspect]
     Dosage: 25 mg, 2x/day
  6. LYRICA [Suspect]
     Dosage: 75mg in 2 days
     Route: 048
     Dates: start: 2012
  7. LYRICA [Suspect]
     Dosage: 25 mg, 1x/day
     Route: 048
     Dates: start: 20120404
  8. MEILAX [Concomitant]
     Dosage: UNK
     Route: 048
  9. DOGMATYL [Concomitant]
     Route: 048

REACTIONS (8)
  - Low density lipoprotein increased [Unknown]
  - Alanine aminotransferase increased [Unknown]
  - Aspartate aminotransferase increased [Unknown]
  - Irritability [Unknown]
  - Depressed mood [Unknown]
  - Pain [Unknown]
  - Anxiety [Unknown]
  - Palpitations [Unknown]
